FAERS Safety Report 17281916 (Version 1)
Quarter: 2020Q1

REPORT INFORMATION
  Report Type: Spontaneous
  Country: US (occurrence: US)
  Receive Date: 20200117
  Receipt Date: 20200117
  Transmission Date: 20200409
  Serious: Yes (Death, Hospitalization, Other)
  Sender: FDA-Public Use
  Company Number: US-009507513-2001USA004494

PATIENT
  Sex: Male

DRUGS (6)
  1. KEYTRUDA [Suspect]
     Active Substance: PEMBROLIZUMAB
     Indication: METASTASES TO STOMACH
  2. OMEPRAZOLE. [Concomitant]
     Active Substance: OMEPRAZOLE
  3. LASIX [Concomitant]
     Active Substance: FUROSEMIDE
  4. PERCOCET [Concomitant]
     Active Substance: ACETAMINOPHEN\OXYCODONE HYDROCHLORIDE
  5. ASPIRIN. [Concomitant]
     Active Substance: ASPIRIN
  6. KEYTRUDA [Suspect]
     Active Substance: PEMBROLIZUMAB
     Indication: METASTATIC MALIGNANT MELANOMA
     Dosage: UNK, 6 TREATMENTS
     Route: 042
     Dates: start: 2016

REACTIONS (5)
  - Renal failure [Fatal]
  - Urinary retention [Unknown]
  - Dysuria [Unknown]
  - Adverse event [Unknown]
  - Anaemia [Unknown]

NARRATIVE: CASE EVENT DATE: 2019
